FAERS Safety Report 24680650 (Version 2)
Quarter: 2025Q3

REPORT INFORMATION
  Report Type: Spontaneous
  Country: SA (occurrence: SA)
  Receive Date: 20241129
  Receipt Date: 20250804
  Transmission Date: 20251020
  Serious: Yes (Death, Other)
  Sender: ALEXION PHARMACEUTICALS
  Company Number: SA-AstraZeneca-CH-00754733A

PATIENT
  Age: 64 Year
  Sex: Male

DRUGS (1)
  1. LYNPARZA [Suspect]
     Active Substance: OLAPARIB
     Indication: Prostate cancer
     Dosage: 300 MILLIGRAM, Q12H
     Dates: start: 20241121, end: 20241124

REACTIONS (1)
  - Death [Fatal]

NARRATIVE: CASE EVENT DATE: 20241124
